FAERS Safety Report 22218508 (Version 1)
Quarter: 2023Q2

REPORT INFORMATION
  Report Type: Spontaneous
  Country: JP (occurrence: JP)
  Receive Date: 20230417
  Receipt Date: 20230417
  Transmission Date: 20230722
  Serious: Yes (Other)
  Sender: FDA-Public Use
  Company Number: JP-GEHPL-2023JSU002743AA

PATIENT
  Age: 8 Decade
  Sex: Male

DRUGS (2)
  1. OMNIPAQUE [Suspect]
     Active Substance: IOHEXOL
     Indication: Scan with contrast
     Dosage: 150 ML, SINGLE
     Route: 042
     Dates: start: 20230411, end: 20230411
  2. OMNIPAQUE [Suspect]
     Active Substance: IOHEXOL
     Indication: Product used for unknown indication

REACTIONS (6)
  - Oculogyric crisis [Recovered/Resolved]
  - Oropharyngeal pain [Recovered/Resolved]
  - Feeling abnormal [Unknown]
  - Blood pressure decreased [Recovered/Resolved]
  - Conjunctival hyperaemia [Recovered/Resolved]
  - Hyperhidrosis [Recovered/Resolved]

NARRATIVE: CASE EVENT DATE: 20230411
